FAERS Safety Report 10252059 (Version 1)
Quarter: 2014Q2

REPORT INFORMATION
  Report Type: Spontaneous
  Country: FR (occurrence: FR)
  Receive Date: 20140623
  Receipt Date: 20140623
  Transmission Date: 20141212
  Serious: Yes (Hospitalization)
  Sender: FDA-Public Use
  Company Number: PHHY2014FR076315

PATIENT
  Age: 58 Year
  Sex: Female

DRUGS (2)
  1. ZOMETA [Suspect]
     Dosage: UNK UKN, UNK
     Dates: start: 2008, end: 2010
  2. LYTOS [Suspect]
     Dosage: UNK UKN, UNK

REACTIONS (1)
  - Osteonecrosis [Unknown]
